FAERS Safety Report 13091772 (Version 1)
Quarter: 2017Q1

REPORT INFORMATION
  Report Type: Spontaneous
  Country: US (occurrence: US)
  Receive Date: 20170104
  Receipt Date: 20170104
  Transmission Date: 20170428
  Serious: No
  Sender: FDA-Public Use
  Company Number: None

PATIENT
  Age: 70 Year
  Sex: Female
  Weight: 64.41 kg

DRUGS (1)
  1. OFEV [Suspect]
     Active Substance: NINTEDANIB
     Indication: PULMONARY FIBROSIS
     Route: 048
     Dates: start: 20160229

REACTIONS (7)
  - Nausea [None]
  - Dizziness [None]
  - Vomiting [None]
  - Activities of daily living impaired [None]
  - Diarrhoea [None]
  - Asthenia [None]
  - Weight decreased [None]
